FAERS Safety Report 17849875 (Version 1)
Quarter: 2020Q2

REPORT INFORMATION
  Report Type: Spontaneous
  Country: US (occurrence: US)
  Receive Date: 20200601
  Receipt Date: 20200601
  Transmission Date: 20200714
  Serious: Yes (Hospitalization)
  Sender: FDA-Public Use
  Company Number: None

PATIENT
  Age: 69 Year
  Sex: Male

DRUGS (6)
  1. NEO/POLY/HC [Concomitant]
     Active Substance: HYDROCORTISONE\NEOMYCIN\POLYMYXIN B SULFATE
  2. PROCTOZONE [Concomitant]
     Active Substance: HYDROCORTISONE
  3. REPATHA [Suspect]
     Active Substance: EVOLOCUMAB
     Indication: PRODUCT USED FOR UNKNOWN INDICATION
     Dosage: ?          OTHER FREQUENCY:Q2WK;?
     Route: 058
     Dates: start: 20200320
  4. CIPROFLOXACIN. [Concomitant]
     Active Substance: CIPROFLOXACIN
  5. HYDROCORTISO [Concomitant]
  6. SMZ/TMP DS [Concomitant]
     Active Substance: SULFAMETHOXAZOLE\TRIMETHOPRIM

REACTIONS (1)
  - Surgery [None]

NARRATIVE: CASE EVENT DATE: 20200504
